FAERS Safety Report 8333014-X (Version None)
Quarter: 2012Q2

REPORT INFORMATION
  Report Type: 
  Country: None (occurrence: None)
  Receive Date: 20120503
  Receipt Date: 20120423
  Transmission Date: 20120825
  Serious: Yes (Hospitalization)
  Sender: FDA-Public Use
  Company Number: PHFR2012GB001828

PATIENT
  Sex: Male
  Weight: 68 kg

DRUGS (3)
  1. ATORVASTATIN CALCIUM [Concomitant]
     Dosage: 10 MG, DAILY
     Route: 048
     Dates: start: 20080101
  2. CITALOPRAM [Concomitant]
     Dosage: 40 MG, DAILY
     Route: 048
     Dates: start: 20080101
  3. CLOZARIL [Suspect]
     Indication: SCHIZOPHRENIA
     Dosage: 500 MG, DAILY
     Route: 048
     Dates: start: 20080309

REACTIONS (4)
  - HEAD INJURY [None]
  - CONVULSION [None]
  - FALL [None]
  - HAEMORRHAGE [None]
